FAERS Safety Report 24242668 (Version 1)
Quarter: 2024Q3

REPORT INFORMATION
  Report Type: Spontaneous
  Country: US (occurrence: None)
  Receive Date: 20240822
  Receipt Date: 20240822
  Transmission Date: 20241017
  Serious: Yes (Hospitalization)
  Sender: Public
  Company Number: None

PATIENT
  Age: 70 Year
  Sex: Female
  Weight: 72 kg

DRUGS (23)
  1. EMGALITY [Suspect]
     Active Substance: GALCANEZUMAB-GNLM
     Indication: Migraine
     Dosage: OTHER FREQUENCY : 1 TIME A MONTH;?OTHER ROUTE : INJECTION;?
     Route: 050
     Dates: start: 20240816
  2. ALBUTEROL [Concomitant]
     Active Substance: ALBUTEROL
     Dosage: 1 TIME A MONTH INJECTION
  3. BACLOFEN [Concomitant]
     Active Substance: BACLOFEN
  4. GABAPENTIN [Concomitant]
     Active Substance: GABAPENTIN
  5. LORATADINE [Concomitant]
     Active Substance: LORATADINE
  6. OMEPRAZOLE [Concomitant]
     Active Substance: OMEPRAZOLE
  7. ONDANSETRON [Concomitant]
     Active Substance: ONDANSETRON
  8. PROPRANOLOL [Concomitant]
     Active Substance: PROPRANOLOL HYDROCHLORIDE
  9. QUETIAPINE [Concomitant]
     Active Substance: QUETIAPINE
  10. SUDAFED [Concomitant]
     Active Substance: PSEUDOEPHEDRINE HYDROCHLORIDE
  11. SUMATRIPTAN [Concomitant]
     Active Substance: SUMATRIPTAN\SUMATRIPTAN SUCCINATE
  12. VENLAFAXINE [Concomitant]
     Active Substance: VENLAFAXINE HYDROCHLORIDE
  13. VITAMIN B COMPLEX [Concomitant]
     Active Substance: CYANOCOBALAMIN\DEXPANTHENOL\NIACINAMIDE\PYRIDOXINE HYDROCHLORIDE\RIBOFLAVIN 5^-PHOSPHATE SODIUM\THIA
  14. BROMELAINS [Concomitant]
     Active Substance: BROMELAINS
  15. CALCIUM [Concomitant]
     Active Substance: CALCIUM
  16. COENZYME Q10 [Concomitant]
     Active Substance: DIETARY SUPPLEMENT\UBIDECARENONE
  17. FOLIC ACID [Concomitant]
     Active Substance: FOLIC ACID
  18. MAGNESIUM CITRATE [Concomitant]
     Active Substance: MAGNESIUM CITRATE
  19. VITAMINS [Concomitant]
     Active Substance: VITAMINS
  20. OMEGA 3 [Concomitant]
     Active Substance: CAPSAICIN
  21. PROBIOTICS NOS [Concomitant]
     Active Substance: PROBIOTICS NOS
  22. R-Lipoic Acid [Concomitant]
  23. VITAMIN C [Concomitant]
     Active Substance: ASCORBIC ACID

REACTIONS (5)
  - Grip strength decreased [None]
  - Muscular weakness [None]
  - Bedridden [None]
  - Hypoaesthesia [None]
  - Headache [None]

NARRATIVE: CASE EVENT DATE: 20240816
